FAERS Safety Report 9021262 (Version 1)
Quarter: 2013Q1

REPORT INFORMATION
  Report Type: Spontaneous
  Country: US (occurrence: US)
  Receive Date: 20130119
  Receipt Date: 20130119
  Transmission Date: 20140127
  Serious: No
  Sender: FDA-Public Use
  Company Number: US-ALLERGAN-1203135US

PATIENT
  Age: 58 Year
  Sex: Female

DRUGS (5)
  1. BOTOX? [Suspect]
     Indication: TORTICOLLIS
     Dosage: UNK
     Route: 030
     Dates: start: 20120120, end: 20120120
  2. ZANTAC                             /00550801/ [Concomitant]
     Indication: GASTROOESOPHAGEAL REFLUX DISEASE
     Dosage: UNK
  3. CARAFATE [Concomitant]
     Indication: GASTROOESOPHAGEAL REFLUX DISEASE
     Dosage: UNK
  4. VOLTAREN                           /00372301/ [Concomitant]
     Indication: ARTHRITIS
     Dosage: UNK
  5. LYBREL [Concomitant]
     Indication: HORMONE REPLACEMENT THERAPY
     Dosage: UNK

REACTIONS (3)
  - Headache [Recovered/Resolved]
  - Nausea [Unknown]
  - Vomiting [Unknown]
